FAERS Safety Report 23480079 (Version 1)
Quarter: 2024Q1

REPORT INFORMATION
  Report Type: Spontaneous
  Country: DE (occurrence: DE)
  Receive Date: 20240205
  Receipt Date: 20240205
  Transmission Date: 20240409
  Serious: Yes (Hospitalization)
  Sender: FDA-Public Use
  Company Number: None

PATIENT
  Age: 34 Year
  Sex: Female

DRUGS (6)
  1. CEFUROXIME AXETIL [Suspect]
     Active Substance: CEFUROXIME AXETIL
     Indication: Odynophagia
     Dosage: 500 MILLIGRAM, BID (EVERY 0.5 DAY)
     Route: 048
     Dates: start: 20240108, end: 20240109
  2. CEFUROXIME AXETIL [Suspect]
     Active Substance: CEFUROXIME AXETIL
     Indication: Dysphagia
  3. CEFUROXIME AXETIL [Suspect]
     Active Substance: CEFUROXIME AXETIL
     Indication: Tonsillectomy
  4. METAMIZOLE SODIUM [Concomitant]
     Active Substance: METAMIZOLE SODIUM
     Indication: Analgesic therapy
     Dosage: 40 DROP, QID (EVERY 6 HOUR)
     Route: 048
     Dates: start: 20240108, end: 20240109
  5. PANTOPRAZOLE SODIUM [Concomitant]
     Active Substance: PANTOPRAZOLE SODIUM
     Indication: Product used for unknown indication
     Dosage: UNK
     Route: 065
  6. VOLTAREN [Concomitant]
     Active Substance: DICLOFENAC SODIUM
     Indication: Analgesic therapy
     Dosage: 1 DOSAGE FORM, TID (EVERY 8 HOUR)
     Route: 048
     Dates: start: 20240108, end: 20240109

REACTIONS (3)
  - Procedural pain [Recovered/Resolved]
  - Dyspnoea [Recovered/Resolved]
  - Rash [Recovered/Resolved]

NARRATIVE: CASE EVENT DATE: 20240109
